FAERS Safety Report 12106281 (Version 3)
Quarter: 2016Q1

REPORT INFORMATION
  Report Type: Report from Study
  Country: US (occurrence: US)
  Receive Date: 20160223
  Receipt Date: 20160317
  Transmission Date: 20160526
  Serious: Yes (Other)
  Sender: FDA-Public Use
  Company Number: US-BAYER-2016-026757

PATIENT
  Age: 79 Year
  Sex: Male

DRUGS (4)
  1. STIVARGA [Suspect]
     Active Substance: REGORAFENIB
     Indication: METASTASES TO BILIARY TRACT
     Dosage: 80 MG, QD
     Route: 048
     Dates: start: 201603
  2. STIVARGA [Suspect]
     Active Substance: REGORAFENIB
     Indication: COLORECTAL CANCER
     Dosage: 120 MG, QD
     Route: 048
     Dates: start: 20160210, end: 20160215
  3. STIVARGA [Suspect]
     Active Substance: REGORAFENIB
     Indication: GASTRIC CANCER
     Dosage: 160 MG
     Route: 048
     Dates: start: 20160130, end: 20160209
  4. STIVARGA [Suspect]
     Active Substance: REGORAFENIB
     Indication: METASTASES TO LIVER
     Dosage: 1 TABLET DAILY
     Route: 048
     Dates: start: 20160220, end: 2016

REACTIONS (19)
  - Erythema [None]
  - Dry mouth [None]
  - Fatigue [None]
  - Buccal mucosal roughening [None]
  - Decreased appetite [None]
  - Erythema [Not Recovered/Not Resolved]
  - Pain in extremity [Not Recovered/Not Resolved]
  - Palmar-plantar erythrodysaesthesia syndrome [Not Recovered/Not Resolved]
  - Pain [Not Recovered/Not Resolved]
  - Joint swelling [None]
  - Abdominal distension [None]
  - Pain in extremity [None]
  - Peripheral swelling [None]
  - Pain [None]
  - Wheelchair user [None]
  - Ageusia [None]
  - Hyperkeratosis [Not Recovered/Not Resolved]
  - Gait disturbance [Not Recovered/Not Resolved]
  - Peripheral swelling [None]

NARRATIVE: CASE EVENT DATE: 201602
